FAERS Safety Report 21421432 (Version 1)
Quarter: 2022Q4

REPORT INFORMATION
  Report Type: Report from Study
  Country: AT (occurrence: AT)
  Receive Date: 20221007
  Receipt Date: 20221007
  Transmission Date: 20230112
  Serious: Yes (Other)
  Sender: FDA-Public Use
  Company Number: AT-ABBVIE-4141598

PATIENT

DRUGS (1)
  1. VENETOCLAX [Suspect]
     Active Substance: VENETOCLAX
     Indication: Product used for unknown indication
     Route: 048

REACTIONS (1)
  - Haematotoxicity [Unknown]
